FAERS Safety Report 14453918 (Version 1)
Quarter: 2018Q1

REPORT INFORMATION
  Report Type: Spontaneous
  Country: CA (occurrence: CA)
  Receive Date: 20180129
  Receipt Date: 20180129
  Transmission Date: 20180509
  Serious: Yes (Hospitalization)
  Sender: FDA-Public Use
  Company Number: CA-TARO PHARMACEUTICALS USA.,INC-2018SUN00035

PATIENT
  Age: 76 Year
  Sex: Female

DRUGS (1)
  1. WARFARIN [Suspect]
     Active Substance: WARFARIN
     Indication: THROMBOSIS PROPHYLAXIS
     Dosage: UNK
     Route: 065

REACTIONS (11)
  - Nerve root compression [Recovered/Resolved]
  - Myalgia [Recovered/Resolved]
  - Respiratory distress [Recovered/Resolved]
  - Anticoagulation drug level above therapeutic [Recovered/Resolved]
  - Spinal column stenosis [Recovered/Resolved]
  - Spinal cord compression [Recovered/Resolved]
  - Quadriplegia [Recovered/Resolved]
  - Spinal column injury [Recovered/Resolved]
  - Oxygen saturation decreased [Recovered/Resolved]
  - Spinal epidural haematoma [Recovered/Resolved]
  - Haematuria [Recovered/Resolved]
